FAERS Safety Report 4479694-0 (Version None)
Quarter: 2004Q4

REPORT INFORMATION
  Report Type: 
  Country: None (occurrence: None)
  Receive Date: 20041020
  Receipt Date: 20041001
  Transmission Date: 20050328
  Serious: Yes (Other)
  Sender: FDA-Public Use
  Company Number: DE-GLAXOSMITHKLINE-D0044853A

PATIENT
  Age: 64 Year
  Sex: Male
  Weight: 65 kg

DRUGS (5)
  1. ZOVIRAX [Suspect]
     Indication: HERPES ZOSTER
     Dosage: 4TAB PER DAY
     Route: 048
     Dates: start: 20040720, end: 20040725
  2. SANDIMMUNE [Suspect]
     Indication: LIVER TRANSPLANT
     Dosage: 50MG TWICE PER DAY
     Route: 048
  3. CYCLOSPORINE [Concomitant]
     Route: 065
  4. VALTREX [Concomitant]
     Route: 048
  5. GANCICLOVIR [Concomitant]
     Route: 065

REACTIONS (7)
  - ANGIOPATHY [None]
  - BLOOD GLUCOSE INCREASED [None]
  - BLOOD INSULIN DECREASED [None]
  - CARBOHYDRATE METABOLISM DISORDER [None]
  - DIABETES MELLITUS [None]
  - DIABETES MELLITUS INSULIN-DEPENDENT [None]
  - HYPERTENSION [None]
